FAERS Safety Report 14622184 (Version 1)
Quarter: 2018Q1

REPORT INFORMATION
  Report Type: Spontaneous
  Country: US (occurrence: US)
  Receive Date: 20180311
  Receipt Date: 20180311
  Transmission Date: 20180509
  Serious: Yes (Other)
  Sender: FDA-Public Use
  Company Number: US-TEVA-2018-US-867489

PATIENT
  Age: 66 Year
  Sex: Female

DRUGS (1)
  1. VANTRELA ER [Suspect]
     Active Substance: HYDROCODONE BITARTRATE
     Route: 065

REACTIONS (2)
  - Musculoskeletal pain [Unknown]
  - Herpes zoster [Unknown]
